FAERS Safety Report 10432244 (Version 1)
Quarter: 2014Q3

REPORT INFORMATION
  Report Type: Spontaneous
  Country: US (occurrence: None)
  Receive Date: 20140815
  Receipt Date: 20140815
  Transmission Date: 20150326
  Serious: No
  Sender: FDA-Public Use
  Company Number: A-NJ2014-98537

PATIENT
  Age: 79 Year
  Sex: Female

DRUGS (4)
  1. REVATIO (SILDENAFIL CITRATE) [Concomitant]
  2. WARFARIN (WARFARIN) [Concomitant]
     Active Substance: WARFARIN
  3. OPSUMIT [Suspect]
     Active Substance: MACITENTAN
     Indication: PULMONARY ARTERIAL HYPERTENSION
     Route: 048
     Dates: end: 201405
  4. LRYSITID (AMBRISENTAN) [Concomitant]

REACTIONS (4)
  - Nervousness [None]
  - Fluid retention [None]
  - Drug dose omission [None]
  - Oedema peripheral [None]

NARRATIVE: CASE EVENT DATE: 20140328
